FAERS Safety Report 22871959 (Version 2)
Quarter: 2023Q4

REPORT INFORMATION
  Report Type: Spontaneous
  Country: US (occurrence: None)
  Receive Date: 20230828
  Receipt Date: 20231006
  Transmission Date: 20240110
  Serious: No
  Sender: FDA-Public Use
  Company Number: 2023A195161

PATIENT
  Sex: Male

DRUGS (2)
  1. SYMBICORT [Suspect]
     Active Substance: BUDESONIDE\FORMOTEROL FUMARATE DIHYDRATE
     Dosage: SYMBICORT80/4.5 TWO INHALATIONS TWICE A DAY
     Route: 055
  2. SYMBICORT [Suspect]
     Active Substance: BUDESONIDE\FORMOTEROL FUMARATE DIHYDRATE
     Dosage: 160/4.5 TWO INHALATION TWICE A DAY
     Route: 055

REACTIONS (8)
  - Dyspnoea [Unknown]
  - Aphonia [Unknown]
  - Drug ineffective [Unknown]
  - Intentional product misuse [Unknown]
  - Product dose omission issue [Unknown]
  - Device defective [Unknown]
  - Device delivery system issue [Unknown]
  - Device failure [Unknown]
